FAERS Safety Report 11385868 (Version 1)
Quarter: 2015Q3

REPORT INFORMATION
  Report Type: Spontaneous
  Country: US (occurrence: None)
  Receive Date: 20150813
  Receipt Date: 20150813
  Transmission Date: 20151125
  Serious: Yes (Hospitalization)
  Sender: FDA-Public Use
  Company Number: None

PATIENT
  Age: 17 Year
  Sex: Male
  Weight: 50 kg

DRUGS (3)
  1. HYDROCODONE - APAP 5-325 MG MCKESSEN PACKAG [Suspect]
     Active Substance: ACETAMINOPHEN\HYDROCODONE
     Indication: TOOTHACHE
     Dosage: 5-325 MGX2
     Route: 048
     Dates: start: 20150702, end: 20150707
  2. HYDROCODONE - APAP 5-325 MG MCKESSEN PACKAG [Suspect]
     Active Substance: ACETAMINOPHEN\HYDROCODONE
     Indication: TOOTH ABSCESS
     Dosage: 5-325 MGX2
     Route: 048
     Dates: start: 20150702, end: 20150707
  3. DIPHENHYDRAMINE 50 MG RICHMOND PHARMA [Suspect]
     Active Substance: DIPHENHYDRAMINE
     Indication: EXTRAPYRAMIDAL DISORDER
     Route: 048
     Dates: start: 20150702, end: 20150707

REACTIONS (4)
  - Vomiting [None]
  - Constipation [None]
  - Delirium [None]
  - Faecaloma [None]

NARRATIVE: CASE EVENT DATE: 20150707
